FAERS Safety Report 8724184 (Version 2)
Quarter: 2012Q4

REPORT INFORMATION
  Report Type: 
  Country: US (occurrence: US)
  Receive Date: 20120815
  Receipt Date: 20121112
  Transmission Date: 20130627
  Serious: Yes (Hospitalization)
  Sender: FDA-Public Use
  Company Number: US-INCYTE CORPORATION-2012IN001499

PATIENT
  Age: 88 Year
  Sex: Female

DRUGS (1)
  1. JAKAFI [Suspect]
     Indication: MYELOFIBROSIS
     Dosage: 20 mg, bid
     Dates: start: 20111227

REACTIONS (3)
  - Pneumonia [Recovered/Resolved]
  - Asthenia [Unknown]
  - Fatigue [Unknown]
